FAERS Safety Report 8337809-8 (Version None)
Quarter: 2012Q2

REPORT INFORMATION
  Report Type: 
  Country: None (occurrence: None)
  Receive Date: 20120504
  Receipt Date: 20120427
  Transmission Date: 20120825
  Serious: Yes (Hospitalization)
  Sender: FDA-Public Use
  Company Number: FR-GLAXOSMITHKLINE-B0798529A

PATIENT
  Age: 13 Year
  Sex: Female

DRUGS (2)
  1. SUMATRIPTAN SUCCINATE [Suspect]
     Indication: MIGRAINE WITH AURA
     Dosage: 10MG AS REQUIRED
     Route: 045
     Dates: start: 20071201, end: 20120301
  2. VALPROATE SODIUM [Concomitant]
     Indication: EPILEPSY
     Dosage: 500MG TWICE PER DAY
     Route: 065

REACTIONS (1)
  - CONVULSION [None]
